FAERS Safety Report 14031728 (Version 1)
Quarter: 2017Q4

REPORT INFORMATION
  Report Type: Spontaneous
  Country: US (occurrence: US)
  Receive Date: 20171002
  Receipt Date: 20171002
  Transmission Date: 20180321
  Serious: No
  Sender: FDA-Public Use
  Company Number: US-BAYER-2017-186851

PATIENT
  Sex: Female
  Weight: 43 kg

DRUGS (1)
  1. MIRALAX [Suspect]
     Active Substance: POLYETHYLENE GLYCOL 3350
     Indication: GASTROINTESTINAL DISORDER
     Dosage: 1 DF,(1/4, 1/2)
     Route: 048
     Dates: start: 201709

REACTIONS (2)
  - Incorrect drug administration duration [Unknown]
  - Underdose [Unknown]
